FAERS Safety Report 10508960 (Version 9)
Quarter: 2015Q3

REPORT INFORMATION
  Report Type: Report from Study
  Country: GB (occurrence: GB)
  Receive Date: 20141009
  Receipt Date: 20150916
  Transmission Date: 20151125
  Serious: Yes (Hospitalization, Other)
  Sender: FDA-Public Use
  Company Number: GB-ROCHE-1467640

PATIENT
  Age: 78 Year
  Sex: Male

DRUGS (19)
  1. MIRTAZAPIN [Concomitant]
     Active Substance: MIRTAZAPINE
  2. ASPIRIN. [Concomitant]
     Active Substance: ASPIRIN
  3. BISOPROLOL [Concomitant]
     Active Substance: BISOPROLOL
  4. OMEPRAZOLE. [Concomitant]
     Active Substance: OMEPRAZOLE
  5. CANDESARTAN [Concomitant]
     Active Substance: CANDESARTAN
  6. DILTIAZEM [Concomitant]
     Active Substance: DILTIAZEM
  7. BECLOMETASONE [Concomitant]
     Active Substance: BECLOMETHASONE DIPROPIONATE
  8. SIMVASTATIN. [Concomitant]
     Active Substance: SIMVASTATIN
  9. RANIBIZUMAB [Suspect]
     Active Substance: RANIBIZUMAB
     Indication: NEOVASCULAR AGE-RELATED MACULAR DEGENERATION
     Route: 050
     Dates: start: 20140327, end: 20140327
  10. WARFARIN [Concomitant]
     Active Substance: WARFARIN
  11. SOLIFENACIN [Concomitant]
     Active Substance: SOLIFENACIN
  12. COCODAMOL [Concomitant]
     Active Substance: ACETAMINOPHEN\CODEINE PHOSPHATE
  13. TAMSULOSIN [Concomitant]
     Active Substance: TAMSULOSIN
  14. ATORVASTATIN [Concomitant]
     Active Substance: ATORVASTATIN
  15. NICORANDIL [Concomitant]
     Active Substance: NICORANDIL
  16. SALBUTAMOL [Concomitant]
     Active Substance: ALBUTEROL
  17. ZOPICLONE [Concomitant]
     Active Substance: ZOPICLONE
  18. VENTOLIN [Concomitant]
     Active Substance: ALBUTEROL SULFATE
  19. MIRABEGRON [Concomitant]
     Active Substance: MIRABEGRON

REACTIONS (14)
  - Haematuria [Recovered/Resolved]
  - Bronchiectasis [Unknown]
  - Lower respiratory tract infection [Unknown]
  - Cardiomegaly [Unknown]
  - Scrotal pain [Unknown]
  - Lower urinary tract symptoms [Unknown]
  - Angina pectoris [Recovered/Resolved]
  - Pleurisy [Unknown]
  - Oedema peripheral [Not Recovered/Not Resolved]
  - Bladder spasm [Unknown]
  - Urinary retention [Unknown]
  - Procedural complication [Unknown]
  - Scrotal swelling [Unknown]
  - Non-cardiac chest pain [Unknown]

NARRATIVE: CASE EVENT DATE: 20140501
